FAERS Safety Report 15854602 (Version 3)
Quarter: 2019Q3

REPORT INFORMATION
  Report Type: Spontaneous
  Country: IT (occurrence: IT)
  Receive Date: 20190122
  Receipt Date: 20190801
  Transmission Date: 20191004
  Serious: Yes (Other)
  Sender: FDA-Public Use
  Company Number: IT-PFIZER INC-2019025191

PATIENT
  Age: 61 Year
  Sex: Male

DRUGS (5)
  1. LIPIODOL [Suspect]
     Active Substance: ETHIODIZED OIL
     Indication: HEPATOCELLULAR CARCINOMA
     Dosage: UNK (EPIRUBICIN- LIPIODOL MIXTURE, 5-10 ML LIPIODOL ULTRAFLUID, TRANSCATHETER CHEMOEMBOLIZATION)
     Route: 013
  2. IOPAMIDOL [Suspect]
     Active Substance: IOPAMIDOL
     Indication: HEPATOCELLULAR CARCINOMA
     Dosage: UNK (2-4 ML IOPAMIDOL 300 MGI, TRANSCATHETER CHEMOEMBOLIZATION)
     Route: 013
  3. EPIRUBICIN HCL [Suspect]
     Active Substance: EPIRUBICIN HYDROCHLORIDE
     Indication: HEPATOCELLULAR CARCINOMA
     Dosage: 40 MG, CYCLIC (EPIRUBICIN- LIPIODOL MIXTURE/INJECTED/TRANSCATHETER CHEMOEMBOLIZATION)
     Route: 013
  4. GELATIN [Suspect]
     Active Substance: GELATIN
     Indication: EMBOLISM
  5. GELATIN [Suspect]
     Active Substance: GELATIN
     Indication: HEPATOCELLULAR CARCINOMA
     Dosage: UNK (SPONGE INJECTION, TRANSCATHETER CHEMOEMBOLIZATION)
     Route: 013

REACTIONS (4)
  - Hepatic artery stenosis [Unknown]
  - Aneurysm [Unknown]
  - Off label use [Unknown]
  - Product use issue [Unknown]
